FAERS Safety Report 9285499 (Version 1)
Quarter: 2013Q2

REPORT INFORMATION
  Report Type: Spontaneous
  Country: US (occurrence: None)
  Receive Date: 20130510
  Receipt Date: 20130510
  Transmission Date: 20140414
  Serious: Yes (Death)
  Sender: FDA-Public Use
  Company Number: None

PATIENT
  Age: 80 Year
  Sex: Male
  Weight: 77.11 kg

DRUGS (1)
  1. CARBOCAINE [Suspect]
     Indication: ANAESTHESIA
     Dosage: 1.7 ML X 2 = 3.4 ML  DENTAL
     Route: 004
     Dates: start: 20130415, end: 20130415

REACTIONS (4)
  - Throat irritation [None]
  - Chest pain [None]
  - Dyspnoea [None]
  - Emotional distress [None]
